FAERS Safety Report 25249740 (Version 4)
Quarter: 2025Q2

REPORT INFORMATION
  Report Type: Report from Study
  Country: CA (occurrence: CA)
  Receive Date: 20250429
  Receipt Date: 20250611
  Transmission Date: 20250716
  Serious: Yes (Hospitalization)
  Sender: TAKEDA
  Company Number: CA-TAKEDA-2025TUS030715

PATIENT
  Age: 60 Year
  Sex: Female

DRUGS (25)
  1. HUMAN IMMUNOGLOBULIN G\HYALURONIDASE RECOMBINANT HUMAN [Suspect]
     Active Substance: HUMAN IMMUNOGLOBULIN G\HYALURONIDASE (HUMAN RECOMBINANT)
     Indication: Secondary immunodeficiency
     Dosage: 20 GRAM, Q4WEEKS
  2. HUMAN IMMUNOGLOBULIN G\HYALURONIDASE RECOMBINANT HUMAN [Suspect]
     Active Substance: HUMAN IMMUNOGLOBULIN G\HYALURONIDASE (HUMAN RECOMBINANT)
     Dosage: 20 GRAM, Q4WEEKS
  3. HUMAN IMMUNOGLOBULIN G\HYALURONIDASE RECOMBINANT HUMAN [Suspect]
     Active Substance: HUMAN IMMUNOGLOBULIN G\HYALURONIDASE (HUMAN RECOMBINANT)
     Dosage: 20 GRAM, Q4WEEKS
  4. HUMAN IMMUNOGLOBULIN G\HYALURONIDASE RECOMBINANT HUMAN [Suspect]
     Active Substance: HUMAN IMMUNOGLOBULIN G\HYALURONIDASE (HUMAN RECOMBINANT)
     Dosage: 20 GRAM, Q4WEEKS
  5. HUMAN IMMUNOGLOBULIN G\HYALURONIDASE RECOMBINANT HUMAN [Suspect]
     Active Substance: HUMAN IMMUNOGLOBULIN G\HYALURONIDASE (HUMAN RECOMBINANT)
     Dosage: 20 GRAM, Q4WEEKS
  6. HUMAN IMMUNOGLOBULIN G\HYALURONIDASE RECOMBINANT HUMAN [Suspect]
     Active Substance: HUMAN IMMUNOGLOBULIN G\HYALURONIDASE (HUMAN RECOMBINANT)
     Dosage: 20 GRAM, Q4WEEKS
     Dates: start: 20250310
  7. LENALIDOMIDE [Suspect]
     Active Substance: LENALIDOMIDE
     Indication: Product used for unknown indication
  8. HYDROMORPHONE [Concomitant]
     Active Substance: HYDROMORPHONE
  9. SALICYLIC ACID [Concomitant]
     Active Substance: SALICYLIC ACID
  10. PREGABALIN [Concomitant]
     Active Substance: PREGABALIN
  11. VALACYCLOVIR [Concomitant]
     Active Substance: VALACYCLOVIR HYDROCHLORIDE
  12. REVLIMID [Concomitant]
     Active Substance: LENALIDOMIDE
  13. HYDROMORPHONE [Concomitant]
     Active Substance: HYDROMORPHONE
  14. ZOLEDRONIC ACID [Concomitant]
     Active Substance: ZOLEDRONIC ACID
  15. ASPIRIN [Concomitant]
     Active Substance: ASPIRIN
  16. VITAMIN D [Concomitant]
     Active Substance: VITAMIN D NOS
  17. VITAMIN D [Concomitant]
     Active Substance: VITAMIN D NOS
  18. ESTRADIOL [Concomitant]
     Active Substance: ESTRADIOL
  19. DOCUSATE [Concomitant]
     Active Substance: DOCUSATE
  20. POLYETHYLENE GLYCOL 3350 [Concomitant]
     Active Substance: POLYETHYLENE GLYCOL 3350
  21. OLANZAPINE [Concomitant]
     Active Substance: OLANZAPINE
  22. LOPERAMIDE [Concomitant]
     Active Substance: LOPERAMIDE
  23. TYLENOL [Concomitant]
     Active Substance: ACETAMINOPHEN
  24. POTASSIUM [Concomitant]
     Active Substance: POTASSIUM
  25. PREDNISONE [Concomitant]
     Active Substance: PREDNISONE

REACTIONS (18)
  - Asthenia [Recovered/Resolved]
  - Electrolyte imbalance [Unknown]
  - Feeling abnormal [Unknown]
  - Weight decreased [Unknown]
  - Inappropriate schedule of product administration [Unknown]
  - Illness [Recovering/Resolving]
  - Thinking abnormal [Recovering/Resolving]
  - Drug hypersensitivity [Unknown]
  - Nervousness [Unknown]
  - Blood pressure fluctuation [Unknown]
  - Decreased appetite [Recovering/Resolving]
  - Blood pressure decreased [Unknown]
  - Infusion site pain [Recovering/Resolving]
  - Malaise [Unknown]
  - Diarrhoea [Unknown]
  - Infusion site haemorrhage [Unknown]
  - Infusion site swelling [Unknown]
  - Nausea [Recovering/Resolving]

NARRATIVE: CASE EVENT DATE: 20250605
